FAERS Safety Report 12584707 (Version 5)
Quarter: 2016Q3

REPORT INFORMATION
  Report Type: Report from Study
  Country: IL (occurrence: IL)
  Receive Date: 20160722
  Receipt Date: 20160922
  Transmission Date: 20161109
  Serious: Yes (Death, Life-Threatening, Hospitalization, Other)
  Sender: FDA-Public Use
  Company Number: IL-B.I. PHARMACEUTICALS,INC./RIDGEFIELD-2016-BI-41548BI

PATIENT
  Age: 87 Year
  Sex: Male

DRUGS (11)
  1. LIPITOR [Concomitant]
     Active Substance: ATORVASTATIN CALCIUM
     Indication: LIPID METABOLISM DISORDER
     Dosage: 10 MG
     Route: 048
     Dates: start: 20140112, end: 20160704
  2. CARDIOLOC [Concomitant]
     Indication: HYPERTENSION
     Dosage: 5 MG
     Route: 048
     Dates: start: 20160502, end: 20160625
  3. CILARIL PLUS [Concomitant]
     Indication: HYPERTENSION
     Dosage: DOSE PER APP AND DAILY DOSE: DIAZAPRIL 5 MG + HYDROCHLORTHIZIDE 12.5 MG
     Route: 048
     Dates: start: 20040404, end: 20160704
  4. BI 655075 [Suspect]
     Active Substance: IDARUCIZUMAB
     Indication: PROCOAGULANT THERAPY
     Dosage: A SINGLE USE, 2 DOSES, 15 MIN APART
     Route: 042
     Dates: start: 20160619, end: 20160619
  5. BI 655075 [Suspect]
     Active Substance: IDARUCIZUMAB
     Indication: CEREBRAL HAEMORRHAGE
  6. VASODIP [Concomitant]
     Active Substance: LERCANIDIPINE HYDROCHLORIDE
     Indication: HYPERTENSION
     Dosage: 20 MG
     Route: 048
     Dates: start: 20160509, end: 20160704
  7. GLUCOPHAGE [Concomitant]
     Active Substance: METFORMIN HYDROCHLORIDE
     Indication: TYPE 2 DIABETES MELLITUS
     Dosage: 1700 MG
     Route: 048
     Dates: start: 20100804, end: 20160704
  8. CALCIUM PLUS [Concomitant]
     Indication: HYPERTENSION
     Dosage: 1 ANZ
     Route: 048
     Dates: start: 20100311, end: 20160704
  9. DOXALOC [Concomitant]
     Indication: HYPERTENSION
     Dosage: 2 MG
     Route: 048
     Dates: start: 20160119, end: 20160704
  10. DISOTHIAZIDE [Concomitant]
     Indication: HYPERTENSION
     Dosage: 12.5 MG
     Route: 048
     Dates: start: 20160624, end: 20160704
  11. LOSEC [Concomitant]
     Active Substance: OMEPRAZOLE
     Indication: GASTRITIS PROPHYLAXIS
     Dosage: 40 MG
     Route: 048
     Dates: start: 20160619, end: 20160704

REACTIONS (3)
  - Pyrexia [Fatal]
  - Cerebrovascular accident [Fatal]
  - Delirium [Recovered/Resolved]

NARRATIVE: CASE EVENT DATE: 20160619
